FAERS Safety Report 8593336-4 (Version None)
Quarter: 2012Q3

REPORT INFORMATION
  Report Type: 
  Country: None (occurrence: None)
  Receive Date: 20120814
  Receipt Date: 20120808
  Transmission Date: 20120928
  Serious: Yes (Death)
  Sender: FDA-Public Use
  Company Number: KP-JNJFOC-20120805335

PATIENT
  Sex: Male

DRUGS (5)
  1. VANCOCIN HYDROCHLORIDE [Suspect]
     Indication: ANTIBIOTIC PROPHYLAXIS
     Route: 065
     Dates: start: 20120606, end: 20120612
  2. ENOXAPARIN SODIUM [Concomitant]
     Indication: ANTIPLATELET THERAPY
     Dosage: 6000 IU/0.6ML
     Route: 065
     Dates: start: 20120529, end: 20120612
  3. NORPIN [Concomitant]
     Indication: HYPERTENSION
     Dosage: 8 MG/4ML
     Route: 065
     Dates: start: 20120529, end: 20120612
  4. DORIPENEM MONOHYDRATE [Suspect]
     Indication: PNEUMONIA
     Route: 042
     Dates: start: 20120605, end: 20120612
  5. PROPOFOL [Concomitant]
     Indication: ANALGESIC THERAPY
     Route: 065
     Dates: start: 20120602, end: 20120612

REACTIONS (2)
  - PNEUMONIA [None]
  - SEPSIS [None]
